FAERS Safety Report 9354101 (Version 1)
Quarter: 2013Q2

REPORT INFORMATION
  Report Type: Spontaneous
  Country: US (occurrence: US)
  Receive Date: 20130618
  Receipt Date: 20130618
  Transmission Date: 20140414
  Serious: Yes (Death, Hospitalization)
  Sender: FDA-Public Use
  Company Number: US-GLAXOSMITHKLINE-A0835033A

PATIENT
  Age: 29 Year
  Sex: Male

DRUGS (1)
  1. AVANDIA [Suspect]
     Indication: DIABETES MELLITUS
     Dosage: 8MG PER DAY
     Route: 048
     Dates: start: 20080417, end: 20090323

REACTIONS (3)
  - Hypoxic-ischaemic encephalopathy [Fatal]
  - Ventricular fibrillation [Unknown]
  - Myocardial infarction [Unknown]
